FAERS Safety Report 13176730 (Version 1)
Quarter: 2017Q1

REPORT INFORMATION
  Report Type: Spontaneous
  Country: ES (occurrence: ES)
  Receive Date: 20170201
  Receipt Date: 20170201
  Transmission Date: 20170428
  Serious: Yes (Other)
  Sender: FDA-Public Use
  Company Number: ES-MYLANLABS-16X-144-1259180-00

PATIENT

DRUGS (10)
  1. DALSY [Suspect]
     Active Substance: IBUPROFEN
     Dosage: 6 ML
     Route: 048
     Dates: start: 201601, end: 201601
  2. POLARAMINE [Concomitant]
     Active Substance: DEXCHLORPHENIRAMINE MALEATE
     Dosage: 2 MG
     Route: 048
     Dates: start: 201605, end: 201605
  3. DALSY [Suspect]
     Active Substance: IBUPROFEN
     Dosage: UNK
     Route: 048
     Dates: start: 20160513, end: 20160513
  4. DALSY [Suspect]
     Active Substance: IBUPROFEN
     Dosage: UNK
     Route: 048
  5. DALSY [Suspect]
     Active Substance: IBUPROFEN
     Indication: PYREXIA
     Dosage: 6MILLILITERONCE
     Route: 048
     Dates: start: 201603, end: 201603
  6. DALSY [Suspect]
     Active Substance: IBUPROFEN
     Dosage: 6 ML
     Route: 048
     Dates: start: 20160529, end: 20160529
  7. IBUPROFEN. [Suspect]
     Active Substance: IBUPROFEN
     Indication: PRODUCT USED FOR UNKNOWN INDICATION
     Dosage: GIVEN 1/4 TAB AND HALF AN HOUR LATER 1/2 TABLET
     Route: 048
     Dates: start: 20161114
  8. POLARAMINE [Concomitant]
     Active Substance: DEXCHLORPHENIRAMINE MALEATE
     Indication: PRODUCT USED FOR UNKNOWN INDICATION
     Dosage: 2MILLIGRAMONCE
     Route: 048
     Dates: start: 201603, end: 201603
  9. POLARAMINE [Concomitant]
     Active Substance: DEXCHLORPHENIRAMINE MALEATE
     Dosage: 2 MG
     Route: 048
     Dates: start: 201605, end: 201605
  10. POLARAMINE [Concomitant]
     Active Substance: DEXCHLORPHENIRAMINE MALEATE
     Dosage: NOT ORALLY
     Dates: start: 201601, end: 201601

REACTIONS (4)
  - Rash [Recovered/Resolved]
  - Dyspnoea [Recovered/Resolved]
  - Urticaria [Recovered/Resolved]
  - Tongue disorder [Recovered/Resolved]

NARRATIVE: CASE EVENT DATE: 201603
